FAERS Safety Report 20665934 (Version 4)
Quarter: 2022Q3

REPORT INFORMATION
  Report Type: Spontaneous
  Country: US (occurrence: US)
  Receive Date: 20220403
  Receipt Date: 20220728
  Transmission Date: 20221027
  Serious: Yes (Other)
  Sender: FDA-Public Use
  Company Number: US-BRISTOL-MYERS SQUIBB COMPANY-2022-014019

PATIENT
  Age: 64 Year
  Sex: Female

DRUGS (2)
  1. REVLIMID [Suspect]
     Active Substance: LENALIDOMIDE
     Indication: Plasma cell myeloma
     Dosage: 10 MG TAKE 1 CAPSULE BY MOUTH DAILY FOR 21 DAYS ON, FOLLOWED BY 7 DAYS OFF.
     Route: 048
     Dates: start: 20200113
  2. REVLIMID [Suspect]
     Active Substance: LENALIDOMIDE
     Dosage: REVLIMID AT A DOSE OF 10 MG TAKE 1 CAPSULE BY MOUTH DAILY FOR 21 DAYS ON, FOLLOWED BY 7 DAYS OFF
     Route: 065

REACTIONS (8)
  - Paraesthesia [Unknown]
  - Neuropathy peripheral [Unknown]
  - Dyspnoea [Unknown]
  - Pain [Unknown]
  - Weight decreased [Unknown]
  - Asthenia [Unknown]
  - Pulmonary embolism [Unknown]
  - Diverticulum [Unknown]
